FAERS Safety Report 7808682-9 (Version None)
Quarter: 2011Q4

REPORT INFORMATION
  Report Type: 
  Country: None (occurrence: None)
  Receive Date: 20111012
  Receipt Date: 20111007
  Transmission Date: 20120403
  Serious: Yes (Death)
  Sender: FDA-Public Use
  Company Number: US-ASTELLAS-2011US006587

PATIENT
  Sex: Female

DRUGS (1)
  1. PROGRAF [Suspect]
     Indication: LUNG TRANSPLANT
     Dosage: 0.5 MG, BID
     Route: 048
     Dates: start: 20110301, end: 20111001

REACTIONS (4)
  - OFF LABEL USE [None]
  - LUNG DISORDER [None]
  - DYSPNOEA [None]
  - DEATH [None]
